FAERS Safety Report 15344247 (Version 5)
Quarter: 2019Q2

REPORT INFORMATION
  Report Type: Spontaneous
  Country: US (occurrence: US)
  Receive Date: 20180903
  Receipt Date: 20190628
  Transmission Date: 20190711
  Serious: Yes (Other)
  Sender: FDA-Public Use
  Company Number: US-PFIZER INC-2018354473

PATIENT
  Age: 44 Year
  Sex: Female
  Weight: 47.17 kg

DRUGS (2)
  1. LYRICA [Suspect]
     Active Substance: PREGABALIN
     Dosage: 150 MG, TWICE A DAY
     Route: 048
  2. LYRICA [Suspect]
     Active Substance: PREGABALIN
     Dosage: 50 MG, TWICE A DAY
     Route: 048
     Dates: end: 20180725

REACTIONS (12)
  - Insomnia [Unknown]
  - Pain [Unknown]
  - Cold sweat [Unknown]
  - Fatigue [Unknown]
  - Headache [Unknown]
  - Anxiety [Unknown]
  - Drug withdrawal syndrome [Unknown]
  - Formication [Unknown]
  - Fibromyalgia [Not Recovered/Not Resolved]
  - Discomfort [Unknown]
  - Neuropathy peripheral [Unknown]
  - Depression [Unknown]
